FAERS Safety Report 8075130-6 (Version None)
Quarter: 2012Q1

REPORT INFORMATION
  Report Type: 
  Country: None (occurrence: None)
  Receive Date: 20120127
  Receipt Date: 20120124
  Transmission Date: 20120608
  Serious: No
  Sender: FDA-Public Use
  Company Number: US-BIOGENIDEC-2012BI002908

PATIENT
  Sex: Female

DRUGS (2)
  1. TYSABRI [Suspect]
     Indication: MULTIPLE SCLEROSIS
     Route: 042
     Dates: start: 20061221, end: 20090713
  2. TYSABRI [Suspect]
     Route: 042
     Dates: start: 20100218

REACTIONS (4)
  - GAIT DISTURBANCE [None]
  - TREMOR [None]
  - MOBILITY DECREASED [None]
  - DRUG EFFECT DECREASED [None]
